FAERS Safety Report 21638078 (Version 2)
Quarter: 2022Q4

REPORT INFORMATION
  Report Type: Spontaneous
  Country: JP (occurrence: JP)
  Receive Date: 20221124
  Receipt Date: 20221208
  Transmission Date: 20230113
  Serious: Yes (Death, Hospitalization, Other)
  Sender: FDA-Public Use
  Company Number: JP-ASTELLAS-2022JP007014

PATIENT
  Age: 8 Decade
  Sex: Male

DRUGS (1)
  1. PADCEV [Suspect]
     Active Substance: ENFORTUMAB VEDOTIN-EJFV
     Indication: Transitional cell carcinoma
     Dosage: 1.25 MG/KG, OTHER (ONCE WEEKLY FOR THREE CONSECUTIVE WEEKS, INTERRUPTION IN WEEK 4)
     Route: 041
     Dates: start: 20220509, end: 20220516

REACTIONS (4)
  - Fatigue [Recovering/Resolving]
  - Malignant neoplasm progression [Fatal]
  - COVID-19 [Recovering/Resolving]
  - Intestinal haemorrhage [Fatal]

NARRATIVE: CASE EVENT DATE: 20220516
